FAERS Safety Report 7968315 (Version 10)
Quarter: 2013Q3

REPORT INFORMATION
  Report Type: Report from Study
  Country: AU (occurrence: AU)
  Receive Date: 20110601
  Receipt Date: 20130809
  Transmission Date: 20140515
  Serious: Yes (Hospitalization)
  Sender: FDA-Public Use
  Company Number: AU-JNJFOC-20110510660

PATIENT
  Age: 75 Year
  Sex: Male
  Weight: 81.3 kg

DRUGS (17)
  1. ABIRATERONE ACETATE [Suspect]
     Indication: PROSTATE CANCER METASTATIC
     Route: 048
     Dates: start: 20110513, end: 20110520
  2. ABIRATERONE ACETATE [Suspect]
     Indication: PROSTATE CANCER METASTATIC
     Route: 048
     Dates: start: 20110524, end: 20110524
  3. ABIRATERONE ACETATE [Suspect]
     Indication: PROSTATE CANCER METASTATIC
     Route: 048
     Dates: start: 20110604, end: 20110606
  4. ABIRATERONE ACETATE [Suspect]
     Indication: PROSTATE CANCER METASTATIC
     Route: 048
     Dates: start: 20110618
  5. PREDNISONE [Suspect]
     Indication: PROSTATE CANCER METASTATIC
     Route: 048
     Dates: start: 20110513, end: 20110520
  6. PREDNISONE [Suspect]
     Indication: PROSTATE CANCER METASTATIC
     Route: 048
     Dates: start: 20110521
  7. NORSPAN [Suspect]
     Indication: PAIN
     Route: 062
     Dates: start: 20110616
  8. NORSPAN [Suspect]
     Indication: PAIN
     Route: 062
  9. NORSPAN [Suspect]
     Indication: PAIN
     Route: 062
     Dates: start: 20110517
  10. NEURONTIN [Concomitant]
     Indication: PAIN
     Route: 065
     Dates: start: 2010
  11. CALTRATE [Concomitant]
     Indication: MINERAL SUPPLEMENTATION
     Route: 065
     Dates: start: 2010
  12. NEXIUM [Concomitant]
     Indication: GASTROINTESTINAL DISORDER THERAPY
     Route: 065
     Dates: start: 20100928
  13. LUCRIN [Concomitant]
     Indication: HORMONE THERAPY
     Route: 065
     Dates: start: 200710
  14. PACKED CELLS [Concomitant]
     Indication: ANAEMIA
     Route: 065
     Dates: start: 20110609, end: 20110610
  15. NORMAL SALINE [Concomitant]
     Indication: ANAEMIA
     Route: 065
     Dates: start: 20110609, end: 20110609
  16. FUROSEMIDE [Concomitant]
     Indication: ANAEMIA
     Route: 065
     Dates: start: 20110609, end: 20110610
  17. MORPHINE [Concomitant]
     Indication: PAIN
     Route: 065
     Dates: start: 20110609, end: 20110609

REACTIONS (4)
  - Dehydration [Recovered/Resolved]
  - Nerve root compression [Recovered/Resolved]
  - Viral upper respiratory tract infection [Recovered/Resolved]
  - Anaemia [Recovered/Resolved]
